FAERS Safety Report 5677232-8 (Version None)
Quarter: 2008Q1

REPORT INFORMATION
  Report Type: 
  Country: None (occurrence: None)
  Receive Date: 20080321
  Receipt Date: 20080321
  Transmission Date: 20080703
  Serious: Yes (Other)
  Sender: FDA-Public Use
  Company Number: None

PATIENT
  Age: 52 Year
  Sex: Male
  Weight: 96 kg

DRUGS (2)
  1. MIDAZOLAM HCL [Suspect]
     Indication: COLONOSCOPY
     Dosage: 8MG 1-2 INCREMENTS IV BOLUS
     Route: 040
     Dates: start: 20080314, end: 20080314
  2. MIDAZOLAM HCL [Suspect]
     Indication: SEDATION
     Dosage: 8MG 1-2 INCREMENTS IV BOLUS
     Route: 040
     Dates: start: 20080314, end: 20080314

REACTIONS (1)
  - DRUG INEFFECTIVE [None]
